FAERS Safety Report 9133238 (Version 2)
Quarter: 2013Q1

REPORT INFORMATION
  Report Type: Spontaneous
  Country: US (occurrence: US)
  Receive Date: 20130126
  Receipt Date: 20130320
  Transmission Date: 20140127
  Serious: Yes (Death, Hospitalization)
  Sender: FDA-Public Use
  Company Number: US-TEVA-382027USA

PATIENT
  Age: 61 Year
  Sex: Male

DRUGS (2)
  1. TREANDA [Suspect]
     Indication: PRODUCT USED FOR UNKNOWN INDICATION
     Dosage: RECEIVED 3 CYCLES
  2. RITUXAN [Suspect]
     Dosage: RECEIVED 3 CYCLES

REACTIONS (3)
  - Disease progression [Fatal]
  - Mantle cell lymphoma [Fatal]
  - Metastases to meninges [Fatal]
